FAERS Safety Report 5571500-6 (Version None)
Quarter: 2007Q4

REPORT INFORMATION
  Report Type: 
  Country: None (occurrence: None)
  Receive Date: 20071221
  Receipt Date: 20071210
  Transmission Date: 20080405
  Serious: No
  Sender: FDA-Public Use
  Company Number: US-BAYER-200716198NA

PATIENT
  Age: 34 Year
  Sex: Female
  Weight: 59 kg

DRUGS (4)
  1. YASMIN [Suspect]
     Indication: CONTRACEPTION
     Route: 048
     Dates: start: 20060701, end: 20060801
  2. YAZ [Suspect]
     Indication: CONTRACEPTION
     Route: 048
     Dates: start: 20060801, end: 20070701
  3. SUDAFED 12 HOUR [Concomitant]
     Indication: MULTIPLE ALLERGIES
  4. ORTHO TRI-CYCLEN LO [Concomitant]

REACTIONS (17)
  - ALOPECIA [None]
  - AMNESIA [None]
  - ANGER [None]
  - ANXIETY [None]
  - CONSTIPATION [None]
  - DIZZINESS [None]
  - DYSPEPSIA [None]
  - FLAT AFFECT [None]
  - HYPERSENSITIVITY [None]
  - INSOMNIA [None]
  - LIBIDO DECREASED [None]
  - MUSCLE SPASMS [None]
  - NIGHT SWEATS [None]
  - PALPITATIONS [None]
  - PARAESTHESIA [None]
  - SINUSITIS [None]
  - URTICARIA [None]
